FAERS Safety Report 4423080-6 (Version None)
Quarter: 2004Q3

REPORT INFORMATION
  Report Type: 
  Country: None (occurrence: None)
  Receive Date: 20040810
  Receipt Date: 20040810
  Transmission Date: 20050211
  Serious: Yes (Hospitalization)
  Sender: FDA-Public Use
  Company Number: None

PATIENT
  Age: 81 Year
  Sex: Male

DRUGS (10)
  1. CYCLOPHOSPHAMIDE [Suspect]
     Indication: PROSTATE CANCER
     Dosage: 50 MG/M2P QD DAY 1-1 ORAL
     Route: 048
  2. ESTRAMUSTINE [Suspect]
     Indication: PROSTATE CANCER
     Dosage: 280 MG QD DAY 1-1 ORAL
     Route: 048
  3. ETOPOSIDE [Suspect]
  4. LASIX [Concomitant]
  5. PLAVIX [Concomitant]
  6. LOPRESSOR [Concomitant]
  7. ASPIRIN [Concomitant]
  8. PROTONIX [Concomitant]
  9. ZOMETA [Concomitant]
  10. NITROGLYCERIN [Concomitant]

REACTIONS (3)
  - BACTERIURIA [None]
  - DYSURIA [None]
  - URINE ANALYSIS ABNORMAL [None]
